APPROVED DRUG PRODUCT: HYDROCHLOROTHIAZIDE
Active Ingredient: HYDROCHLOROTHIAZIDE
Strength: 12.5MG
Dosage Form/Route: TABLET;ORAL
Application: A202556 | Product #001 | TE Code: AB
Applicant: ACCORD HEALTHCARE INC
Approved: Sep 24, 2012 | RLD: No | RS: No | Type: RX